FAERS Safety Report 8157158-0 (Version None)
Quarter: 2012Q1

REPORT INFORMATION
  Report Type: 
  Country: None (occurrence: None)
  Receive Date: 20120222
  Receipt Date: 20120214
  Transmission Date: 20120608
  Serious: Yes (Hospitalization)
  Sender: FDA-Public Use
  Company Number: PHHY2012IT013160

PATIENT
  Sex: Male

DRUGS (8)
  1. LORAZEPAM [Suspect]
     Indication: INSOMNIA
     Dosage: 1 MG, DAILY
     Route: 048
     Dates: start: 20111210, end: 20111212
  2. MONOKET [Concomitant]
     Indication: MYOCARDIAL ISCHAEMIA
  3. ACETYLCYSTEINE [Concomitant]
     Indication: BRONCHITIS
  4. OMEPRAZOLE [Concomitant]
     Indication: PROPHYLAXIS AGAINST GASTROINTESTINAL ULCER
  5. FUROSEMIDE [Concomitant]
     Indication: MYOCARDIAL ISCHAEMIA
  6. VENORUTON [Concomitant]
     Indication: VENOUS INSUFFICIENCY
  7. ASPIRIN [Concomitant]
     Indication: MYOCARDIAL ISCHAEMIA
  8. CAPTOPRIL [Concomitant]
     Indication: HYPERTENSION

REACTIONS (2)
  - SYNCOPE [None]
  - DIZZINESS [None]
